FAERS Safety Report 5343698-6 (Version None)
Quarter: 2007Q2

REPORT INFORMATION
  Report Type: 
  Country: None (occurrence: None)
  Receive Date: 20070604
  Receipt Date: 20070524
  Transmission Date: 20071010
  Serious: Yes (Other)
  Sender: FDA-Public Use
  Company Number: MX-JNJFOC-20070505998

PATIENT
  Age: 63 Year
  Sex: Female

DRUGS (1)
  1. TAVANIC [Suspect]
     Indication: RESPIRATORY TRACT INFECTION
     Route: 048

REACTIONS (4)
  - BRONCHOSPASM [None]
  - CONVULSION [None]
  - HYPERTENSION [None]
  - TACHYCARDIA [None]
